FAERS Safety Report 10947578 (Version 1)
Quarter: 2015Q1

REPORT INFORMATION
  Report Type: Spontaneous
  Country: US (occurrence: None)
  Receive Date: 20150212
  Receipt Date: 20150212
  Transmission Date: 20150721
  Serious: No
  Sender: FDA-Public Use
  Company Number: TPA2011A06119

PATIENT
  Age: 62 Year
  Sex: Male
  Weight: 86.18 kg

DRUGS (3)
  1. ULORIC [Suspect]
     Active Substance: FEBUXOSTAT
     Indication: GOUT
     Route: 048
     Dates: start: 201012, end: 201101
  2. COLCHICINE. [Concomitant]
     Active Substance: COLCHICINE
  3. DOXAZOSIN [Concomitant]
     Active Substance: DOXAZOSIN\DOXAZOSIN MESYLATE

REACTIONS (4)
  - Skin depigmentation [None]
  - Gout [None]
  - Paraesthesia [None]
  - Condition aggravated [None]

NARRATIVE: CASE EVENT DATE: 2010
